FAERS Safety Report 11252173 (Version 2)
Quarter: 2015Q3

REPORT INFORMATION
  Report Type: Spontaneous
  Country: US (occurrence: US)
  Receive Date: 20150708
  Receipt Date: 20150903
  Transmission Date: 20151125
  Serious: No
  Sender: FDA-Public Use
  Company Number: US-ELI_LILLY_AND_COMPANY-US201309001907

PATIENT
  Age: 60 Year
  Sex: Female

DRUGS (6)
  1. CYMBALTA [Suspect]
     Active Substance: DULOXETINE HYDROCHLORIDE
     Dosage: 60 MG, UNK
  2. PROZAC [Suspect]
     Active Substance: FLUOXETINE HYDROCHLORIDE
     Indication: DEPRESSION
     Dosage: 20 MG, UNK
  3. CYMBALTA [Suspect]
     Active Substance: DULOXETINE HYDROCHLORIDE
     Indication: DEPRESSION
     Dosage: 20 MG, UNK
  4. CYMBALTA [Suspect]
     Active Substance: DULOXETINE HYDROCHLORIDE
     Indication: ARTHRALGIA
     Dosage: 30 MG, UNK
  5. CYMBALTA [Suspect]
     Active Substance: DULOXETINE HYDROCHLORIDE
     Dosage: 90 MG, UNK
  6. PROZAC [Suspect]
     Active Substance: FLUOXETINE HYDROCHLORIDE
     Indication: MENOPAUSAL SYMPTOMS
     Dosage: 40 MG, UNK

REACTIONS (9)
  - Anxiety [Unknown]
  - Panic attack [Unknown]
  - Rash [Not Recovered/Not Resolved]
  - Impatience [Unknown]
  - Nervousness [Unknown]
  - Drug ineffective [Unknown]
  - Feeling abnormal [Unknown]
  - Palpitations [Unknown]
  - Mood swings [Unknown]
